FAERS Safety Report 7599656-4 (Version None)
Quarter: 2011Q2

REPORT INFORMATION
  Report Type: 
  Country: None (occurrence: None)
  Receive Date: 20110629
  Receipt Date: 20110615
  Transmission Date: 20111010
  Serious: Yes (Other)
  Sender: FDA-Public Use
  Company Number: 2011MA007222

PATIENT
  Age: 40 Year
  Sex: Male

DRUGS (1)
  1. TRAMADOL HYDROCHLORIDE [Suspect]
     Dosage: 500 MG;QD

REACTIONS (8)
  - EXCESSIVE EYE BLINKING [None]
  - RHINORRHOEA [None]
  - CHILLS [None]
  - DRUG DEPENDENCE [None]
  - DRUG WITHDRAWAL SYNDROME [None]
  - ABDOMINAL PAIN [None]
  - INSOMNIA [None]
  - TIC [None]
